FAERS Safety Report 7910432-2 (Version None)
Quarter: 2011Q4

REPORT INFORMATION
  Report Type: 
  Country: None (occurrence: None)
  Receive Date: 20111111
  Receipt Date: 20111028
  Transmission Date: 20120403
  Serious: Yes (Death, Hospitalization, Other)
  Sender: FDA-Public Use
  Company Number: CN-WATSON-2011-17661

PATIENT
  Age: 48 Year
  Sex: Female

DRUGS (4)
  1. DULOXETIME HYDROCHLORIDE [Suspect]
     Indication: PAIN
  2. DULOXETIME HYDROCHLORIDE [Suspect]
     Indication: DEPRESSION
     Dosage: 30 MG, QAM
  3. MIRTAZAPINE [Suspect]
     Indication: DEPRESSION
     Dosage: 45 MG, QHS
     Dates: start: 20070815
  4. MIRTAZAPINE [Suspect]
     Dosage: 30 MG, QHS
     Dates: end: 20070815

REACTIONS (4)
  - EYE MOVEMENT DISORDER [None]
  - CARDIAC ARREST [None]
  - RESPIRATORY ARREST [None]
  - PULMONARY EMBOLISM [None]
